FAERS Safety Report 4712843-5 (Version None)
Quarter: 2005Q3

REPORT INFORMATION
  Report Type: 
  Country: None (occurrence: None)
  Receive Date: 20050711
  Receipt Date: 20050711
  Transmission Date: 20060218
  Serious: Yes (Hospitalization)
  Sender: FDA-Public Use
  Company Number: None

PATIENT
  Sex: Female
  Weight: 73 kg

DRUGS (15)
  1. AMIODARONE 450 MG/ 9 ML INJECTION [Suspect]
     Indication: ATRIAL FIBRILLATION
     Dosage: TITRATE IV
     Route: 042
     Dates: start: 20050528, end: 20050531
  2. LISINOPRIL [Concomitant]
  3. ASPIRIN [Concomitant]
  4. METOPROLOL SUCCINATE [Concomitant]
  5. PRAVASTATIN [Concomitant]
  6. LEVAQUIN [Concomitant]
  7. CLOPIDOGREL BISULFATE [Concomitant]
  8. NITROGLYCERIN [Concomitant]
  9. HEPARIN [Concomitant]
  10. VANCOMYCIN [Concomitant]
  11. TORSEMIDE [Concomitant]
  12. FUROSEMIDE [Concomitant]
  13. PIP-TAZO [Concomitant]
  14. POTASSIUM CHLORIDE [Concomitant]
  15. CARVEDILOL [Concomitant]

REACTIONS (1)
  - HEPATITIS TOXIC [None]
